FAERS Safety Report 9841020 (Version 1)
Quarter: 2013Q4

REPORT INFORMATION
  Report Type: Spontaneous
  Country: US (occurrence: None)
  Receive Date: 20131219
  Receipt Date: 20131219
  Transmission Date: 20140711
  Serious: Yes (Death)
  Sender: FDA-Public Use
  Company Number: 163-20785-12080754

PATIENT
  Age: 57 Year
  Sex: Male

DRUGS (3)
  1. THALIDOMIDE (100 MILLIGRAM, CAPSULES) [Suspect]
     Indication: PLASMA CELL MYELOMA
     Route: 048
     Dates: start: 20110906, end: 20111031
  2. MELPHALAN (MELPHALAN) (UNKNOWN) [Concomitant]
  3. PREDNISONE (PREDNISONE) (UNKNOWN) [Concomitant]

REACTIONS (1)
  - Plasma cell myeloma [None]
